FAERS Safety Report 24895012 (Version 1)
Quarter: 2025Q1

REPORT INFORMATION
  Report Type: Other
  Country: US (occurrence: US)
  Receive Date: 20250128
  Receipt Date: 20250128
  Transmission Date: 20250409
  Serious: Yes (Life-Threatening)
  Sender: B BRAUN
  Company Number: US-B.Braun Medical Inc.-2169947

PATIENT
  Age: 32 Year
  Sex: Male

DRUGS (4)
  1. CEFTRIAXONE SODIUM [Suspect]
     Active Substance: CEFTRIAXONE SODIUM
     Indication: Sepsis
  2. METRONIDAZOLE [Suspect]
     Active Substance: METRONIDAZOLE
  3. ENOXAPARIN [Concomitant]
     Active Substance: ENOXAPARIN
  4. MEROPENEM [Suspect]
     Active Substance: MEROPENEM

REACTIONS (1)
  - Drug ineffective [Unknown]
